FAERS Safety Report 9435068 (Version 1)
Quarter: 2013Q3

REPORT INFORMATION
  Report Type: Spontaneous
  Country: CH (occurrence: None)
  Receive Date: 20130730
  Receipt Date: 20130730
  Transmission Date: 20140515
  Serious: Yes (Other)
  Sender: FDA-Public Use
  Company Number: 2013P1012966

PATIENT
  Age: 40 Year
  Sex: Male

DRUGS (1)
  1. PHENYTOIN [Suspect]
     Indication: CONVULSION

REACTIONS (10)
  - Hypocalcaemia [None]
  - Convulsion [None]
  - Renal failure chronic [None]
  - Congenital cystic kidney disease [None]
  - Hepatic cyst [None]
  - Tuberous sclerosis [None]
  - Congenital anomaly [None]
  - Amnesia [None]
  - Angiofibroma [None]
  - Blood pressure increased [None]
